FAERS Safety Report 21496727 (Version 1)
Quarter: 2022Q4

REPORT INFORMATION
  Report Type: Spontaneous
  Country: US (occurrence: US)
  Receive Date: 20221022
  Receipt Date: 20221022
  Transmission Date: 20230113
  Serious: No
  Sender: FDA-Public Use
  Company Number: US-JNJFOC-20220952269

PATIENT
  Sex: Female
  Weight: 65.830 kg

DRUGS (2)
  1. TREMFYA [Suspect]
     Active Substance: GUSELKUMAB
     Indication: Psoriasis
     Route: 058
  2. TRIAMCINOLONE ACETONIDE [Concomitant]
     Active Substance: TRIAMCINOLONE ACETONIDE
     Dosage: 0.1 (% PERCENT )
     Route: 065

REACTIONS (3)
  - Therapeutic product effect decreased [Unknown]
  - Joint stiffness [Unknown]
  - Joint swelling [Unknown]
